FAERS Safety Report 22099404 (Version 1)
Quarter: 2023Q1

REPORT INFORMATION
  Report Type: Report from Study
  Country: CA (occurrence: CA)
  Receive Date: 20230315
  Receipt Date: 20230315
  Transmission Date: 20230418
  Serious: Yes (Other)
  Sender: FDA-Public Use
  Company Number: CA-JNJFOC-20221241050

PATIENT
  Age: 36 Year
  Sex: Female
  Weight: 87 kg

DRUGS (2)
  1. REMICADE [Suspect]
     Active Substance: INFLIXIMAB
     Indication: Colitis ulcerative
     Route: 042
     Dates: start: 20150915, end: 20221031
  2. REMICADE [Suspect]
     Active Substance: INFLIXIMAB
     Dosage: REQUESTED REMICADE RESTART AFTER DRUG HOLIDAY
     Route: 042

REACTIONS (4)
  - Colitis ulcerative [Unknown]
  - Influenza [Recovering/Resolving]
  - Exposure during pregnancy [Not Recovered/Not Resolved]
  - Off label use [Unknown]

NARRATIVE: CASE EVENT DATE: 20150915
